FAERS Safety Report 12374845 (Version 2)
Quarter: 2016Q2

REPORT INFORMATION
  Report Type: Spontaneous
  Country: DK (occurrence: DK)
  Receive Date: 20160517
  Receipt Date: 20160531
  Transmission Date: 20160815
  Serious: Yes (Other)
  Sender: FDA-Public Use
  Company Number: DK-AUROBINDO-AUR-APL-2016-05870

PATIENT
  Age: 25 Year
  Sex: Male

DRUGS (4)
  1. CHLORZOXAZONE. [Suspect]
     Active Substance: CHLORZOXAZONE
     Indication: NECK PAIN
     Dosage: 250 MG, 3 TIMES A DAY
     Route: 065
  2. MORPHINE [Suspect]
     Active Substance: MORPHINE
     Indication: NECK PAIN
     Dosage: 20-40 MG WITH AN ADDITIONAL DOSE OF 100 MG X 4 AS NECESSARY
     Route: 065
  3. TRAMADOL. [Suspect]
     Active Substance: TRAMADOL
     Indication: NECK PAIN
     Dosage: 150-400 MG DAILY
     Route: 065
  4. FENTANYL. [Suspect]
     Active Substance: FENTANYL
     Indication: NECK PAIN
     Dosage: 25 MCG, EVERY HOUR
     Route: 065

REACTIONS (9)
  - Dizziness [Recovering/Resolving]
  - Muscle spasms [Recovering/Resolving]
  - Weight decreased [Recovering/Resolving]
  - Secondary adrenocortical insufficiency [Recovering/Resolving]
  - Spinal column injury [Recovering/Resolving]
  - Gait disturbance [Recovering/Resolving]
  - Nausea [Recovering/Resolving]
  - Sensory disturbance [Recovering/Resolving]
  - Drug ineffective [Unknown]
